FAERS Safety Report 6258022-4 (Version None)
Quarter: 2009Q3

REPORT INFORMATION
  Report Type: 
  Country: None (occurrence: None)
  Receive Date: 20090707
  Receipt Date: 20090626
  Transmission Date: 20100115
  Serious: Yes (Other)
  Sender: FDA-Public Use
  Company Number: SG-JNJFOC-20090604034

PATIENT
  Age: 7 Decade
  Sex: Female
  Weight: 47 kg

DRUGS (9)
  1. ULTRACET [Suspect]
     Indication: PAIN
     Route: 048
     Dates: start: 20080414, end: 20080416
  2. BROMHEXINE [Concomitant]
     Route: 042
  3. CEFTRIAXONE [Concomitant]
     Route: 042
  4. ENOXAPARIN SODIUM [Concomitant]
     Route: 058
  5. FENTANYL [Concomitant]
     Indication: ANALGESIA
     Route: 008
  6. METRONIDAZOLE [Concomitant]
     Route: 042
  7. OMEPRAZOLE [Concomitant]
     Route: 042
  8. OXYCODONE [Concomitant]
     Route: 048
  9. ROPIVACAINE [Concomitant]
     Indication: POSTOPERATIVE ANALGESIA
     Route: 008

REACTIONS (2)
  - HYPERSENSITIVITY [None]
  - LARYNGEAL OEDEMA [None]
